FAERS Safety Report 17857894 (Version 3)
Quarter: 2022Q1

REPORT INFORMATION
  Report Type: Spontaneous
  Country: US (occurrence: US)
  Receive Date: 20200604
  Receipt Date: 20220119
  Transmission Date: 20220423
  Serious: No
  Sender: FDA-Public Use
  Company Number: US-BAUSCH-BL-2020-015751

PATIENT
  Age: 73 Year
  Sex: Female
  Weight: 50.394 kg

DRUGS (6)
  1. LACRISERT [Suspect]
     Active Substance: HYDROXYPROPYL CELLULOSE
     Indication: Dry eye
     Dosage: APPROXIMATELY 25 YEARS AGO
     Route: 047
  2. LACRISERT [Suspect]
     Active Substance: HYDROXYPROPYL CELLULOSE
     Dosage: FOR PAST FEW MONTHS, CUTTING IN HALF
     Route: 047
     Dates: end: 202005
  3. SYSTANE ULTRA [Concomitant]
     Active Substance: POLYETHYLENE GLYCOL 400\PROPYLENE GLYCOL
     Indication: Thyroid disorder
     Dosage: AS NEEDED
     Route: 047
  4. LEVOTHYROXINE [Concomitant]
     Active Substance: LEVOTHYROXINE
     Indication: Rhinitis
     Route: 048
  5. IPRATROPIUM [Concomitant]
     Active Substance: IPRATROPIUM
     Indication: Product used for unknown indication
     Dosage: AS DIRECTED
     Route: 045
  6. DYMISTA [Concomitant]
     Active Substance: AZELASTINE HYDROCHLORIDE\FLUTICASONE PROPIONATE
     Indication: Product used for unknown indication
     Dosage: AS DIRECTED
     Route: 045

REACTIONS (6)
  - Instillation site pain [Not Recovered/Not Resolved]
  - Instillation site erythema [Not Recovered/Not Resolved]
  - Instillation site irritation [Not Recovered/Not Resolved]
  - Wrong technique in product usage process [Unknown]
  - Product supply issue [Unknown]
  - Therapy interrupted [Unknown]

NARRATIVE: CASE EVENT DATE: 20200101
